FAERS Safety Report 10463505 (Version 1)
Quarter: 2014Q3

REPORT INFORMATION
  Report Type: Spontaneous
  Country: US (occurrence: US)
  Receive Date: 20140919
  Receipt Date: 20140919
  Transmission Date: 20150326
  Serious: Yes (Hospitalization)
  Sender: FDA-Public Use
  Company Number: US-BAYER-2014-135773

PATIENT
  Age: 58 Year
  Sex: Female

DRUGS (8)
  1. ADVAIR HFA [Suspect]
     Active Substance: FLUTICASONE PROPIONATE\SALMETEROL XINAFOATE
     Indication: CHRONIC OBSTRUCTIVE PULMONARY DISEASE
     Dosage: UNK SIX TIMES PER DAY INHALED
     Dates: start: 20121212, end: 20140110
  2. CIPRO [Suspect]
     Active Substance: CIPROFLOXACIN HYDROCHLORIDE
     Indication: PRODUCT USED FOR UNKNOWN INDICATION
     Dosage: UNK
  3. FLOVENT HFA [Suspect]
     Active Substance: FLUTICASONE PROPIONATE
     Indication: ASTHMA
     Dosage: UNK
  4. VENTOLIN HFA [Suspect]
     Active Substance: ALBUTEROL SULFATE
     Indication: PRODUCT USED FOR UNKNOWN INDICATION
     Dosage: 90 MCG, UNK
     Dates: start: 20140110
  5. ROBITUSSIN DM [DEXTROMETHORPHAN HYDROBROMIDE,GUAIFENESIN] [Concomitant]
     Dosage: 500/50 MCG
  6. FLOVENT HFA [Suspect]
     Active Substance: FLUTICASONE PROPIONATE
     Indication: ASTHMA
     Dosage: 110 MCG, 2 PUFFS, INHALED BID
     Dates: start: 20140305
  7. ALBUTEROL SULFATE W/IPRATROPIUM BROMIDE [Concomitant]
     Active Substance: ALBUTEROL SULFATE\IPRATROPIUM BROMIDE
  8. ASPIRIN [ACETYLSALICYLIC ACID] [Concomitant]

REACTIONS (9)
  - Haemoptysis [None]
  - Pneumonia [None]
  - Product contamination [None]
  - Condition aggravated [Recovering/Resolving]
  - Dyspnoea [None]
  - Oxygen saturation decreased [Recovered/Resolved]
  - Sepsis [Recovering/Resolving]
  - Chest pain [None]
  - Cough [None]
